FAERS Safety Report 19681831 (Version 2)
Quarter: 2021Q3

REPORT INFORMATION
  Report Type: Spontaneous
  Country: FR (occurrence: FR)
  Receive Date: 20210810
  Receipt Date: 20210813
  Transmission Date: 20211014
  Serious: Yes (Hospitalization)
  Sender: FDA-Public Use
  Company Number: FR-CELGENEUS-FRA-20210801319

PATIENT
  Age: 69 Year
  Sex: Male

DRUGS (6)
  1. ABRAXANE [Suspect]
     Active Substance: PACLITAXEL
     Indication: ADENOCARCINOMA PANCREAS
     Route: 041
     Dates: start: 20210505, end: 20210519
  2. GEMCITABINE. [Suspect]
     Active Substance: GEMCITABINE
     Indication: ADENOCARCINOMA PANCREAS
     Route: 041
     Dates: start: 20210505, end: 20210628
  3. SODIUM ACETATE. [Concomitant]
     Active Substance: SODIUM ACETATE
     Indication: PRODUCT USED FOR UNKNOWN INDICATION
     Route: 065
  4. HYDROCHLORIC ACID [Concomitant]
     Active Substance: HYDROCHLORIC ACID
     Indication: PRODUCT USED FOR UNKNOWN INDICATION
     Route: 065
  5. SODIUM HYDROXIDE. [Concomitant]
     Active Substance: SODIUM HYDROXIDE
     Indication: ADENOCARCINOMA PANCREAS
     Route: 041
     Dates: start: 20210505, end: 20210628
  6. MANNITOL. [Concomitant]
     Active Substance: MANNITOL
     Indication: PRODUCT USED FOR UNKNOWN INDICATION
     Route: 065

REACTIONS (1)
  - Hepatic cytolysis [Recovering/Resolving]

NARRATIVE: CASE EVENT DATE: 20210517
